FAERS Safety Report 7499010-X (Version None)
Quarter: 2011Q2

REPORT INFORMATION
  Report Type: 
  Country: None (occurrence: None)
  Receive Date: 20110524
  Receipt Date: 20110516
  Transmission Date: 20111010
  Serious: No
  Sender: FDA-Public Use
  Company Number: US-B.I. PHARMACEUTICALS,INC./RIDGEFIELD-2011-BP-13207BP

PATIENT
  Age: 58 Year
  Sex: Male

DRUGS (12)
  1. COREG [Concomitant]
  2. ZOCOR [Concomitant]
  3. PLAVIX [Concomitant]
  4. GLYBURIDE [Concomitant]
  5. PRADAXA [Suspect]
     Indication: ATRIAL FIBRILLATION
     Dosage: 300 MG
     Route: 048
     Dates: start: 20110301
  6. LASIX [Concomitant]
  7. PRADAXA [Suspect]
     Indication: CEREBROVASCULAR ACCIDENT PROPHYLAXIS
  8. INSULIN [Concomitant]
  9. COZAAR [Concomitant]
  10. AMIODARONE HCL [Concomitant]
  11. DIGOXIN [Concomitant]
  12. NEXIUM [Concomitant]

REACTIONS (3)
  - DYSPEPSIA [None]
  - DIZZINESS [None]
  - ASTHENOPIA [None]
